FAERS Safety Report 25531724 (Version 2)
Quarter: 2025Q3

REPORT INFORMATION
  Report Type: Report from Study
  Country: CA (occurrence: CA)
  Receive Date: 20250709
  Receipt Date: 20250902
  Transmission Date: 20251021
  Serious: Yes (Other)
  Sender: JOHNSON AND JOHNSON
  Company Number: CA-JNJFOC-20250708324

PATIENT
  Age: 49 Year
  Sex: Female

DRUGS (2)
  1. TREMFYA [Suspect]
     Active Substance: GUSELKUMAB
     Indication: Psoriasis
     Route: 058
     Dates: start: 20240719
  2. TREMFYA [Suspect]
     Active Substance: GUSELKUMAB
     Route: 058

REACTIONS (2)
  - Illness [Not Recovered/Not Resolved]
  - Liver disorder [Not Recovered/Not Resolved]
